FAERS Safety Report 6674190-4 (Version None)
Quarter: 2010Q2

REPORT INFORMATION
  Report Type: 
  Country: None (occurrence: None)
  Receive Date: 20100407
  Receipt Date: 20100323
  Transmission Date: 20101027
  Serious: Yes (Other)
  Sender: FDA-Public Use
  Company Number: DSJ-2010-02940

PATIENT
  Age: 47 Year
  Sex: Female
  Weight: 38 kg

DRUGS (1)
  1. OLMESARTAN MEDOXOMIL [Suspect]
     Indication: ESSENTIAL HYPERTENSION
     Dosage: 10 MG, PER ORAL
     Route: 048
     Dates: start: 20100205, end: 20100219

REACTIONS (3)
  - FACE OEDEMA [None]
  - OEDEMA PERIPHERAL [None]
  - WEIGHT INCREASED [None]
